FAERS Safety Report 5523490-X (Version None)
Quarter: 2007Q4

REPORT INFORMATION
  Report Type: 
  Country: None (occurrence: None)
  Receive Date: 20071121
  Receipt Date: 20071115
  Transmission Date: 20080405
  Serious: Yes (Other)
  Sender: FDA-Public Use
  Company Number: FR-AVENTIS-200713637FR

PATIENT
  Age: 41 Year
  Sex: Male
  Weight: 68 kg

DRUGS (4)
  1. HYDROCORTISONE [Suspect]
     Indication: ASTHMA
     Route: 048
     Dates: start: 20070101
  2. THEOPHYLLINE [Concomitant]
     Indication: ASTHMA
     Route: 048
     Dates: start: 20070101
  3. MIFLONIL [Concomitant]
     Indication: ASTHMA
     Route: 048
     Dates: start: 20070101
  4. FORADIL [Concomitant]
     Indication: ASTHMA
     Route: 048
     Dates: start: 20070101

REACTIONS (1)
  - ADRENAL INSUFFICIENCY [None]
